FAERS Safety Report 13299049 (Version 1)
Quarter: 2017Q1

REPORT INFORMATION
  Report Type: Report from Study
  Country: US (occurrence: US)
  Receive Date: 20170306
  Receipt Date: 20170306
  Transmission Date: 20170428
  Serious: Yes (Hospitalization, Other)
  Sender: FDA-Public Use
  Company Number: PHEH2017US006074

PATIENT
  Sex: Male

DRUGS (1)
  1. PROMACTA [Suspect]
     Active Substance: ELTROMBOPAG OLAMINE
     Indication: PRODUCT USED FOR UNKNOWN INDICATION
     Route: 065

REACTIONS (11)
  - Platelet count decreased [Unknown]
  - Dementia [Unknown]
  - Dystonia [Unknown]
  - Vitamin D decreased [Unknown]
  - Pneumonia [Unknown]
  - Blood pressure increased [Unknown]
  - Psoriatic arthropathy [Unknown]
  - Epistaxis [Unknown]
  - Vitamin B12 decreased [Unknown]
  - Influenza [Unknown]
  - Confusional state [Unknown]
